FAERS Safety Report 10479298 (Version 2)
Quarter: 2014Q4

REPORT INFORMATION
  Report Type: Spontaneous
  Country: NO (occurrence: NO)
  Receive Date: 20140926
  Receipt Date: 20141017
  Transmission Date: 20150528
  Serious: Yes (Other)
  Sender: FDA-Public Use
  Company Number: NO-WATSON-2014-20382

PATIENT
  Age: 61 Year
  Sex: Male

DRUGS (3)
  1. LACOSAMIDE [Suspect]
     Active Substance: LACOSAMIDE
     Indication: STATUS EPILEPTICUS
     Dosage: UNK
     Route: 065
     Dates: start: 20130117
  2. SODIUM VALPROATE (UNKNOWN) [Suspect]
     Active Substance: VALPROATE SODIUM
     Indication: STATUS EPILEPTICUS
     Dosage: UNK
     Route: 065
     Dates: start: 20130117
  3. LEVETIRACETAM (UNKNOWN) [Suspect]
     Active Substance: LEVETIRACETAM
     Indication: STATUS EPILEPTICUS
     Dosage: UNK
     Route: 065
     Dates: start: 20130117

REACTIONS (3)
  - Drug effect incomplete [Unknown]
  - Generalised tonic-clonic seizure [Unknown]
  - Muscle twitching [Unknown]
